FAERS Safety Report 5140551-8 (Version None)
Quarter: 2006Q4

REPORT INFORMATION
  Report Type: 
  Country: None (occurrence: None)
  Receive Date: 20061025
  Receipt Date: 20061009
  Transmission Date: 20070319
  Serious: Yes (Other)
  Sender: FDA-Public Use
  Company Number: US-2006-006115

PATIENT
  Age: 26 Year
  Sex: Female

DRUGS (2)
  1. BETASERON [Suspect]
     Indication: MULTIPLE SCLEROSIS
     Dosage: SUBCUTANEOUS; 8 MIU, EVERY 2D, SUBCUTANEOUS
     Route: 058
     Dates: start: 20060109
  2. BETASERON [Suspect]
     Indication: MULTIPLE SCLEROSIS
     Dosage: SUBCUTANEOUS; 8 MIU, EVERY 2D, SUBCUTANEOUS
     Route: 058
     Dates: start: 20060904

REACTIONS (7)
  - CONDITION AGGRAVATED [None]
  - DRUG EXPOSURE DURING PREGNANCY [None]
  - LIVER DISORDER [None]
  - MULTIPLE SCLEROSIS [None]
  - PREGNANCY [None]
  - PREMATURE LABOUR [None]
  - UNEVALUABLE EVENT [None]
